FAERS Safety Report 24100215 (Version 1)
Quarter: 2024Q3

REPORT INFORMATION
  Report Type: Report from Study
  Country: US (occurrence: US)
  Receive Date: 20240717
  Receipt Date: 20240717
  Transmission Date: 20241016
  Serious: Yes (Death)
  Sender: ABBVIE
  Company Number: US-ABBVIE-5840612

PATIENT
  Sex: Female

DRUGS (1)
  1. VENCLEXTA [Suspect]
     Active Substance: VENETOCLAX
     Indication: Chronic myelomonocytic leukaemia
     Dosage: FORM STRENGTH:100 MG, TAKE FOUR TABLET BY MOUTH EVERY DAY AT APPROXIMATELY THE  SAME TIME EACH DAY
     Route: 048

REACTIONS (2)
  - Death [Fatal]
  - Off label use [Unknown]
